FAERS Safety Report 10982666 (Version 1)
Quarter: 2015Q2

REPORT INFORMATION
  Report Type: Spontaneous
  Country: IT (occurrence: IT)
  Receive Date: 20150403
  Receipt Date: 20150403
  Transmission Date: 20150821
  Serious: Yes (Hospitalization)
  Sender: FDA-Public Use
  Company Number: IT-ROCHE-1560041

PATIENT
  Age: 58 Year
  Sex: Female

DRUGS (3)
  1. KLACID (ITALY) [Suspect]
     Active Substance: CLARITHROMYCIN
     Indication: PRODUCT USED FOR UNKNOWN INDICATION
     Dosage: 500 MG COATED TABLETS 14 TABLETS
     Route: 048
     Dates: start: 20150323, end: 20150401
  2. NORMIX [Concomitant]
     Active Substance: RIFAXIMIN
     Dosage: 200 MG FILM-COATED TABLETS 12 TABLETS
     Route: 048
  3. ROCEPHIN [Suspect]
     Active Substance: CEFTRIAXONE SODIUM
     Indication: PRODUCT USED FOR UNKNOWN INDICATION
     Dosage: 1 G/3.5 ML 1 POWDER VIAL, 1 X 3.5 ML SOLVENT VIAL
     Route: 030
     Dates: start: 20150323, end: 20150331

REACTIONS (2)
  - Bronchopneumonia [Recovering/Resolving]
  - Drug ineffective [Unknown]

NARRATIVE: CASE EVENT DATE: 20150401
